APPROVED DRUG PRODUCT: EFAVIRENZ
Active Ingredient: EFAVIRENZ
Strength: 600MG
Dosage Form/Route: TABLET;ORAL
Application: A205322 | Product #001
Applicant: AUROBINDO PHARMA LTD
Approved: Aug 30, 2018 | RLD: No | RS: No | Type: DISCN